FAERS Safety Report 6428800-7 (Version None)
Quarter: 2009Q4

REPORT INFORMATION
  Report Type: 
  Country: None (occurrence: None)
  Receive Date: 20091104
  Receipt Date: 20091104
  Transmission Date: 20100525
  Serious: No
  Sender: FDA-Public Use
  Company Number: None

PATIENT
  Age: 64 Year

DRUGS (1)
  1. ZOLEDRONIC [Suspect]
     Indication: METASTASES TO BONE
     Dosage: 4 MG OTHER IV
     Route: 042
     Dates: start: 20070606

REACTIONS (1)
  - OSTEONECROSIS [None]
